FAERS Safety Report 7138286-5 (Version None)
Quarter: 2010Q4

REPORT INFORMATION
  Report Type: 
  Country: None (occurrence: None)
  Receive Date: 20101206
  Receipt Date: 20101206
  Transmission Date: 20110411
  Serious: Yes (Hospitalization)
  Sender: FDA-Public Use
  Company Number: CN-ROCHE-743677

PATIENT
  Age: 53 Year
  Sex: Male

DRUGS (4)
  1. AVASTIN [Suspect]
     Indication: COLORECTAL CANCER METASTATIC
     Route: 041
     Dates: start: 20101028, end: 20101122
  2. 5-FU [Concomitant]
     Indication: COLORECTAL CANCER METASTATIC
     Dates: start: 20101028
  3. CALCIUM FOLINATE [Concomitant]
     Indication: COLORECTAL CANCER METASTATIC
     Dates: start: 20101028
  4. IRINOTECAN HCL [Concomitant]
     Indication: COLORECTAL CANCER METASTATIC
     Dates: start: 20101028

REACTIONS (2)
  - HEPATITIS FULMINANT [None]
  - PROTEIN URINE PRESENT [None]
